FAERS Safety Report 13050032 (Version 5)
Quarter: 2017Q3

REPORT INFORMATION
  Report Type: Report from Study
  Country: CO (occurrence: CO)
  Receive Date: 20161221
  Receipt Date: 20170803
  Transmission Date: 20171127
  Serious: Yes (Death, Hospitalization, Other)
  Sender: FDA-Public Use
  Company Number: PHHY2016CO173383

PATIENT
  Age: 63 Year
  Sex: Male
  Weight: 74 kg

DRUGS (5)
  1. ENALAPRIL [Concomitant]
     Active Substance: ENALAPRIL
     Indication: PRODUCT USED FOR UNKNOWN INDICATION
     Dosage: UNK
     Route: 065
  2. INSULIN [Concomitant]
     Active Substance: INSULIN NOS
     Indication: PRODUCT USED FOR UNKNOWN INDICATION
     Dosage: UNK
     Route: 065
  3. ATORVASTATIN [Concomitant]
     Active Substance: ATORVASTATIN
     Indication: PRODUCT USED FOR UNKNOWN INDICATION
     Dosage: 2 DF, UNK (AT NIGHT)
     Route: 065
  4. VOTRIENT [Suspect]
     Active Substance: PAZOPANIB HYDROCHLORIDE
     Indication: RENAL CELL CARCINOMA
     Dosage: 400 MG, BID (6AM AND 6PM)
     Route: 048
     Dates: start: 20160424
  5. CARVEDILOL. [Concomitant]
     Active Substance: CARVEDILOL
     Indication: PRODUCT USED FOR UNKNOWN INDICATION
     Dosage: UNK
     Route: 065

REACTIONS (16)
  - Blindness [Unknown]
  - Cerebrovascular accident [Unknown]
  - Arterial occlusive disease [Unknown]
  - Alcohol poisoning [Unknown]
  - Headache [Unknown]
  - Incoherent [Recovered/Resolved]
  - Dyschezia [Unknown]
  - Metastases to central nervous system [Fatal]
  - Sensory loss [Unknown]
  - Hypoaesthesia [Unknown]
  - Pain [Unknown]
  - Catheter site haemorrhage [Not Recovered/Not Resolved]
  - Facial asymmetry [Recovering/Resolving]
  - Drug ineffective [Unknown]
  - Gastrointestinal infection [Unknown]
  - Inappropriate schedule of drug administration [Unknown]

NARRATIVE: CASE EVENT DATE: 20161210
